FAERS Safety Report 10254735 (Version 2)
Quarter: 2014Q2

REPORT INFORMATION
  Report Type: Spontaneous
  Country: BR (occurrence: BR)
  Receive Date: 20140624
  Receipt Date: 20140626
  Transmission Date: 20141212
  Serious: Yes (Death, Hospitalization)
  Sender: FDA-Public Use
  Company Number: BR-SA-2014SA081556

PATIENT
  Sex: Female
  Weight: 12.8 kg

DRUGS (9)
  1. MYOZYME [Suspect]
     Indication: GLYCOGEN STORAGE DISEASE TYPE II
     Dosage: 60 ML IN 100 ML OF SALINE
     Route: 042
     Dates: start: 20130620, end: 20140523
  2. PHENOBARBITAL [Concomitant]
     Indication: CONVULSION
  3. OMEPRAZOLE [Concomitant]
     Indication: GASTRITIS
  4. CARVEDILOL [Concomitant]
     Indication: CARDIOMYOPATHY
     Dosage: 3.125 TO 2.3 MG 12/12 HOURS
  5. VITAMIN A AND D [Concomitant]
     Indication: VITAMIN SUPPLEMENTATION
  6. FUROSEMIDE [Concomitant]
     Dosage: 2 MG / ML - 3 ML
  7. FERROUS SULFATE [Concomitant]
     Dosage: 125 MG / ML
  8. HYDROXYZINE [Concomitant]
     Indication: RESPIRATORY DISORDER
     Dosage: 2 MG / ML
  9. SPIRONOLACTONE [Concomitant]
     Dosage: 25 MG, 6 MG

REACTIONS (10)
  - Staphylococcal sepsis [Fatal]
  - Pyrexia [Fatal]
  - Convulsion [Unknown]
  - General physical health deterioration [Unknown]
  - Cerebrovascular accident [Unknown]
  - Ischaemia [Unknown]
  - Neurological decompensation [Unknown]
  - Hypotonia [Unknown]
  - Cardio-respiratory arrest [Unknown]
  - Foot fracture [Unknown]
